FAERS Safety Report 16755159 (Version 1)
Quarter: 2019Q3

REPORT INFORMATION
  Report Type: Report from Study
  Country: FR (occurrence: FR)
  Receive Date: 20190829
  Receipt Date: 20190829
  Transmission Date: 20191005
  Serious: Yes (Other)
  Sender: FDA-Public Use
  Company Number: FR-ROCHE-2382065

PATIENT
  Age: 63 Year
  Sex: Female

DRUGS (5)
  1. CARBOPLATIN. [Suspect]
     Active Substance: CARBOPLATIN
     Indication: OVARIAN CANCER
     Dosage: (AUC = 4, D1) (1000 MG/M2, D1 + D8) 390 MILLIGRAM EVERY?1 CYCLE(S)]
     Route: 042
     Dates: start: 20171207, end: 20180201
  2. BEVACIZUMAB. [Suspect]
     Active Substance: BEVACIZUMAB
     Indication: OVARIAN CANCER
     Dosage: 15MG/KG OR 10 MG/KG DURING THE INDUCTION PERIOD AND WILL BE CONTINUED IN MAINTENANCE PERIOD OF AT A
     Route: 042
     Dates: start: 20171207, end: 20180215
  3. BLINDED ATEZOLIZUMAB [Suspect]
     Active Substance: ATEZOLIZUMAB
     Indication: OVARIAN CANCER
     Dosage: 1200 MG OR 800 MG DURING THE INDUCTION PERIOD AND WILL BE CONTINUED IN MAINTENANCE PERIOD AT A DOSE
     Route: 042
     Dates: start: 20171207, end: 20180215
  4. PEGYLATED LIPOSOMAL DOXORUBICIN [Suspect]
     Active Substance: DOXORUBICIN
     Indication: OVARIAN CANCER
     Dosage: [30 MILLIGRAM PER?SQUARE METRE EVERY 1?CYCLE(S)]
     Route: 042
     Dates: start: 20171207, end: 20180201
  5. GEMCITABINE. [Suspect]
     Active Substance: GEMCITABINE
     Indication: OVARIAN CANCER
     Dosage: (AUC = 4, D1) (1000 MG/M2, D1 + D8)
     Route: 065

REACTIONS (1)
  - Hypothyroidism [Recovered/Resolved]

NARRATIVE: CASE EVENT DATE: 20180227
